FAERS Safety Report 19452060 (Version 2)
Quarter: 2021Q2

REPORT INFORMATION
  Report Type: Spontaneous
  Country: CN (occurrence: CN)
  Receive Date: 20210623
  Receipt Date: 20210629
  Transmission Date: 20210717
  Serious: Yes (Hospitalization, Disabling, Other)
  Sender: FDA-Public Use
  Company Number: CN-SA-2021SA206100

PATIENT
  Age: 71 Year
  Sex: Female
  Weight: 39 kg

DRUGS (7)
  1. BUTYLPHTHALIDE [Concomitant]
     Active Substance: BUTYLPHTHALIDE
     Indication: CEREBRAL INFARCTION
     Dosage: 2 DF, TID
     Route: 048
     Dates: start: 20191213, end: 20191223
  2. EDARAVONE [Concomitant]
     Active Substance: EDARAVONE
     Indication: CEREBRAL INFARCTION
     Dosage: 30 MG, BID
     Route: 041
     Dates: start: 20191213, end: 20191224
  3. PLAVIX [Suspect]
     Active Substance: CLOPIDOGREL BISULFATE
     Indication: PLATELET AGGREGATION ABNORMAL
     Dosage: 75 MG, QD
     Route: 048
     Dates: start: 20191213, end: 20191227
  4. RABEPRAZOLE SODIUM. [Concomitant]
     Active Substance: RABEPRAZOLE SODIUM
     Indication: ULCER
     Dosage: 20 MG, QD
     Route: 048
     Dates: start: 20191213, end: 20191227
  5. LEVOFLOXACIN. [Suspect]
     Active Substance: LEVOFLOXACIN
     Indication: INFECTION
     Dosage: 0.25 G, QD
     Route: 048
     Dates: start: 20191219, end: 20191225
  6. ROSUVASTATIN CALCIUM. [Concomitant]
     Active Substance: ROSUVASTATIN CALCIUM
     Indication: CAROTID ARTERY DISEASE
     Dosage: 1 DF, QD
     Route: 048
     Dates: start: 20191213, end: 20191223
  7. ASPIRIN (E.C.) [Concomitant]
     Active Substance: ASPIRIN
     Dosage: 0.1 G, QD
     Route: 048
     Dates: end: 20191223

REACTIONS (1)
  - Cholestatic liver injury [Recovering/Resolving]

NARRATIVE: CASE EVENT DATE: 20191224
